FAERS Safety Report 15858592 (Version 4)
Quarter: 2019Q3

REPORT INFORMATION
  Report Type: Spontaneous
  Country: US (occurrence: US)
  Receive Date: 20190123
  Receipt Date: 20190821
  Transmission Date: 20191004
  Serious: Yes (Hospitalization, Other)
  Sender: FDA-Public Use
  Company Number: US-ASTRAZENECA-2018SF34212

PATIENT
  Age: 54 Year
  Sex: Male
  Weight: 101 kg

DRUGS (38)
  1. NEXIUM I.V. [Suspect]
     Active Substance: ESOMEPRAZOLE SODIUM
     Route: 042
  2. PRILOSEC [Suspect]
     Active Substance: OMEPRAZOLE MAGNESIUM
     Indication: GASTROOESOPHAGEAL REFLUX DISEASE
     Route: 048
     Dates: start: 19961011, end: 20100728
  3. PREVACID [Suspect]
     Active Substance: LANSOPRAZOLE
     Dosage: GENERIC
     Route: 065
     Dates: start: 20120203, end: 20170831
  4. TAMSULOSIN [Concomitant]
     Active Substance: TAMSULOSIN
  5. AZMACORT [Concomitant]
     Active Substance: TRIAMCINOLONE ACETONIDE
  6. VASOTEC [Concomitant]
     Active Substance: ENALAPRIL MALEATE
  7. NEXIUM [Suspect]
     Active Substance: ESOMEPRAZOLE MAGNESIUM
     Route: 048
     Dates: start: 199610, end: 201208
  8. NEXIUM [Suspect]
     Active Substance: ESOMEPRAZOLE MAGNESIUM
     Route: 048
  9. PROTONIX [Suspect]
     Active Substance: PANTOPRAZOLE SODIUM
     Route: 065
     Dates: start: 20120822
  10. ZEGERID [Suspect]
     Active Substance: OMEPRAZOLE\SODIUM BICARBONATE
     Route: 065
  11. FUROSEMIDE. [Concomitant]
     Active Substance: FUROSEMIDE
  12. ZOCOR [Concomitant]
     Active Substance: SIMVASTATIN
  13. BUMETANIDE. [Concomitant]
     Active Substance: BUMETANIDE
  14. PRILOSEC [Suspect]
     Active Substance: OMEPRAZOLE MAGNESIUM
     Indication: GASTROOESOPHAGEAL REFLUX DISEASE
     Route: 048
     Dates: start: 19961011
  15. PREVACID [Suspect]
     Active Substance: LANSOPRAZOLE
     Route: 065
  16. ASPIRIN. [Concomitant]
     Active Substance: ASPIRIN
  17. PROVENTIL [Concomitant]
     Active Substance: ALBUTEROL
  18. TYLENOL [Concomitant]
     Active Substance: ACETAMINOPHEN
  19. ZANTAC [Concomitant]
     Active Substance: RANITIDINE HYDROCHLORIDE
  20. LANTUS [Concomitant]
     Active Substance: INSULIN GLARGINE
  21. PREVACID 24 HR [Suspect]
     Active Substance: LANSOPRAZOLE
     Route: 065
  22. PROTONIX [Suspect]
     Active Substance: PANTOPRAZOLE SODIUM
     Route: 065
     Dates: start: 199610, end: 201208
  23. ACIPHEX [Suspect]
     Active Substance: RABEPRAZOLE SODIUM
     Route: 065
     Dates: start: 20020118
  24. PRAVASTATIN. [Concomitant]
     Active Substance: PRAVASTATIN
  25. AMBIEN [Concomitant]
     Active Substance: ZOLPIDEM TARTRATE
  26. NEXIUM 24HR [Suspect]
     Active Substance: ESOMEPRAZOLE MAGNESIUM
     Route: 048
  27. PRILOSEC [Suspect]
     Active Substance: OMEPRAZOLE MAGNESIUM
     Indication: GASTROOESOPHAGEAL REFLUX DISEASE
     Route: 048
     Dates: start: 199610, end: 201208
  28. METALOZONE [Concomitant]
  29. PROCARDIA [Concomitant]
     Active Substance: NIFEDIPINE
  30. PRILOSEC [Suspect]
     Active Substance: OMEPRAZOLE MAGNESIUM
     Indication: GASTROOESOPHAGEAL REFLUX DISEASE
     Route: 048
     Dates: start: 19961011, end: 20120425
  31. PRILOSEC [Suspect]
     Active Substance: OMEPRAZOLE MAGNESIUM
     Indication: GASTROOESOPHAGEAL REFLUX DISEASE
     Dosage: GENERIC
     Route: 065
     Dates: start: 20101112, end: 20120105
  32. PRILOSEC [Suspect]
     Active Substance: OMEPRAZOLE MAGNESIUM
     Indication: GASTROOESOPHAGEAL REFLUX DISEASE
     Dosage: GENERIC
     Route: 065
     Dates: start: 20101112, end: 20120425
  33. PRILOSEC OTC [Suspect]
     Active Substance: OMEPRAZOLE MAGNESIUM
     Route: 048
  34. LANSOPRAZOLE. [Concomitant]
     Active Substance: LANSOPRAZOLE
  35. DIABETA [Concomitant]
     Active Substance: GLYBURIDE
  36. LEVSIN [Concomitant]
     Active Substance: HYOSCYAMINE SULFATE
  37. LISINOPRIL. [Concomitant]
     Active Substance: LISINOPRIL
  38. HUMALOG [Concomitant]
     Active Substance: INSULIN LISPRO

REACTIONS (4)
  - Chronic kidney disease [Not Recovered/Not Resolved]
  - Acute kidney injury [Not Recovered/Not Resolved]
  - Renal failure [Unknown]
  - End stage renal disease [Not Recovered/Not Resolved]

NARRATIVE: CASE EVENT DATE: 1997
